FAERS Safety Report 5707261-7 (Version None)
Quarter: 2008Q2

REPORT INFORMATION
  Report Type: 
  Country: None (occurrence: None)
  Receive Date: 20080416
  Receipt Date: 20080411
  Transmission Date: 20081010
  Serious: Yes (Death)
  Sender: FDA-Public Use
  Company Number: GR-SANOFI-SYNTHELABO-F01200800570

PATIENT
  Sex: Female

DRUGS (2)
  1. CAPECITABINE [Suspect]
     Route: 048
     Dates: start: 20071008, end: 20071017
  2. OXALIPLATIN [Suspect]
     Route: 042
     Dates: start: 20071008, end: 20071008

REACTIONS (1)
  - RENAL FAILURE [None]
